FAERS Safety Report 8764007 (Version 1)
Quarter: 2012Q4

REPORT INFORMATION
  Report Type: 
  Country: KR (occurrence: KR)
  Receive Date: 20120831
  Receipt Date: 20120831
  Transmission Date: 20130627
  Serious: Yes (Hospitalization)
  Sender: FDA-Public Use
  Company Number: KR-SANOFI-AVENTIS-2012SA061721

PATIENT
  Age: 22 Year
  Sex: Male

DRUGS (6)
  1. CEFOTAXIME SODIUM [Suspect]
     Indication: CHOLECYSTITIS
     Route: 065
     Dates: start: 20100208
  2. METRONIDAZOLE [Suspect]
     Indication: CHOLECYSTITIS
     Route: 065
     Dates: start: 20100208
  3. PREDNISOLONE [Suspect]
     Indication: DRUG RASH WITH EOSINOPHILIA AND SYSTEMIC SYMPTOMS
     Route: 065
     Dates: start: 2010
  4. PREDNISOLONE [Suspect]
     Indication: DRUG RASH WITH EOSINOPHILIA AND SYSTEMIC SYMPTOMS
     Route: 065
     Dates: end: 20100328
  5. OSELTAMIVIR [Suspect]
     Indication: SWINE INFLUENZA
     Route: 065
     Dates: start: 2010
  6. GANCICLOVIR [Concomitant]
     Indication: CMV INFECTION
     Dates: start: 2010, end: 20100407

REACTIONS (11)
  - Drug reaction with eosinophilia and systemic symptoms [Recovering/Resolving]
  - Pyrexia [Recovering/Resolving]
  - Rash generalised [Recovering/Resolving]
  - Pruritus [Recovering/Resolving]
  - White blood cell count increased [Recovering/Resolving]
  - Eosinophil count increased [Recovering/Resolving]
  - Alanine aminotransferase increased [Recovered/Resolved]
  - Prothrombin time shortened [Recovered/Resolved]
  - Aspartate aminotransferase increased [Recovered/Resolved]
  - Drug reaction with eosinophilia and systemic symptoms [Recovering/Resolving]
  - Rebound effect [Unknown]
